FAERS Safety Report 4629864-3 (Version None)
Quarter: 2005Q2

REPORT INFORMATION
  Report Type: 
  Country: None (occurrence: None)
  Receive Date: 20050407
  Receipt Date: 20050323
  Transmission Date: 20051028
  Serious: Yes (Death, Other)
  Sender: FDA-Public Use
  Company Number: MAG-2005-0000347

PATIENT
  Age: 73 Year
  Sex: Male

DRUGS (29)
  1. OXYCODONE HCL [Suspect]
     Indication: CANCER PAIN
     Dosage: SEE IMAGE
     Route: 048
     Dates: start: 20040921, end: 20041011
  2. OXYCODONE HCL [Suspect]
     Indication: CANCER PAIN
     Dosage: SEE IMAGE
     Route: 048
     Dates: start: 20041012, end: 20041121
  3. OXYCODONE HCL [Suspect]
     Indication: CANCER PAIN
     Dosage: SEE IMAGE
     Route: 048
     Dates: start: 20041122, end: 20041128
  4. OXYCODONE HCL [Suspect]
     Indication: CANCER PAIN
     Dosage: SEE IMAGE
     Route: 048
     Dates: start: 20041129, end: 20041205
  5. OXYCODONE HCL [Suspect]
     Indication: CANCER PAIN
     Dosage: SEE IMAGE
     Route: 048
     Dates: start: 20041206, end: 20041219
  6. OXYCODONE HCL [Suspect]
     Indication: CANCER PAIN
     Dosage: SEE IMAGE
     Route: 048
     Dates: start: 20041220, end: 20050127
  7. OXYCODONE HCL [Suspect]
     Indication: CANCER PAIN
     Dosage: SEE IMAGE
     Route: 048
     Dates: start: 20050128, end: 20050204
  8. KETALAR [Suspect]
     Indication: CANCER PAIN
     Dosage: 100 MG, DAILY, ORAL; 150 MG, DAILY, ORAL; 200 MG, DAILY, ORAL
     Route: 048
     Dates: start: 20041224, end: 20050103
  9. KETALAR [Suspect]
     Indication: CANCER PAIN
     Dosage: 100 MG, DAILY, ORAL; 150 MG, DAILY, ORAL; 200 MG, DAILY, ORAL
     Route: 048
     Dates: start: 20050104, end: 20050113
  10. KETALAR [Suspect]
     Indication: CANCER PAIN
     Dosage: 100 MG, DAILY, ORAL; 150 MG, DAILY, ORAL; 200 MG, DAILY, ORAL
     Route: 048
     Dates: start: 20050114, end: 20050204
  11. BUP-4 (PROPIVERINE HYDROCHLORIDE) [Concomitant]
  12. FERROMIA (FERROUS CITRATE) [Concomitant]
  13. NAUZELIN (DOMEPERIDONE) [Concomitant]
  14. MAGNESIUM OXIDE (MAGNESIUM OXIDE) [Concomitant]
  15. HYPEN (ETOLODAC) [Concomitant]
  16. PRIMPERAN TAB [Concomitant]
  17. ESTRACYT (ESTRAMUSTINE PHOSPHATE SODIUM) [Concomitant]
  18. DECADRON [Concomitant]
  19. SEROTONE         (AZASETRON HCL) [Concomitant]
  20. TAXOTERE [Concomitant]
  21. BISPHONAL [Concomitant]
  22. ALLOID G [Concomitant]
  23. LAXOBERON             (SODIUM PICOSULFATE) [Concomitant]
  24. LECICARBON          SODIUMPHOSPHATE MONOBASIC,SODIUM BICARBONATE) [Concomitant]
  25. MORPHINE HYDROCHLORID) [Concomitant]
  26. LOXONIN (LOXOPROFEN SODIUM) [Concomitant]
  27. XYLOCAINE [Concomitant]
  28. DUROTEP [Concomitant]
  29. TAGAMET [Concomitant]

REACTIONS (6)
  - CONSTIPATION [None]
  - DELIRIUM [None]
  - MALIGNANT NEOPLASM PROGRESSION [None]
  - METASTASES TO BONE [None]
  - METASTASES TO LYMPH NODES [None]
  - PROSTATE CANCER [None]
